FAERS Safety Report 8336194-5 (Version None)
Quarter: 2012Q1

REPORT INFORMATION
  Report Type: 
  Country: None (occurrence: None)
  Receive Date: 20120329
  Receipt Date: 20090610
  Transmission Date: 20120608
  Serious: Yes (Other)
  Sender: FDA-Public Use
  Company Number: PHEH2009US06442

PATIENT
  Sex: Female

DRUGS (2)
  1. EXELON [Suspect]
     Dosage: TRANSDERMAL
     Route: 062
  2. NAMENDA [Concomitant]

REACTIONS (2)
  - DYSKINESIA [None]
  - PARKINSONISM [None]
